FAERS Safety Report 21237111 (Version 1)
Quarter: 2022Q3

REPORT INFORMATION
  Report Type: Spontaneous
  Country: CA (occurrence: CA)
  Receive Date: 20220822
  Receipt Date: 20220822
  Transmission Date: 20221026
  Serious: Yes (Hospitalization, Other)
  Sender: FDA-Public Use
  Company Number: CA-AUROBINDO-AUR-APL-2022-032467

PATIENT
  Age: 67 Year
  Sex: Male

DRUGS (1)
  1. PRAMIPEXOLE [Suspect]
     Active Substance: PRAMIPEXOLE
     Indication: Product used for unknown indication
     Dosage: 0.125 MILLIGRAM, 3 TIMES A DAY
     Route: 048

REACTIONS (3)
  - Coronavirus infection [Unknown]
  - Confusional state [Unknown]
  - Delirium [Unknown]
